FAERS Safety Report 11772190 (Version 1)
Quarter: 2015Q4

REPORT INFORMATION
  Report Type: Spontaneous
  Country: US (occurrence: US)
  Receive Date: 20151124
  Receipt Date: 20151124
  Transmission Date: 20160304
  Serious: No
  Sender: FDA-Public Use
  Company Number: US-TEVA-525298USA

PATIENT
  Age: 88 Year
  Sex: Female

DRUGS (1)
  1. AZITHROMYCIN [Suspect]
     Active Substance: AZITHROMYCIN ANHYDROUS
     Route: 065

REACTIONS (4)
  - Hypersensitivity [Unknown]
  - Viral infection [Unknown]
  - Ventricular extrasystoles [Unknown]
  - Nasopharyngitis [Unknown]
